FAERS Safety Report 8343675-7 (Version None)
Quarter: 2012Q1

REPORT INFORMATION
  Report Type: 
  Country: None (occurrence: None)
  Receive Date: 20120330
  Receipt Date: 20110601
  Transmission Date: 20120608
  Serious: Yes (Hospitalization)
  Sender: FDA-Public Use
  Company Number: PHHY2011US21243

PATIENT
  Sex: Female

DRUGS (14)
  1. AZATHIOPRINE [Concomitant]
  2. PANTOPRAZOLE [Concomitant]
  3. LIPOAMIDE [Concomitant]
  4. POTASSIUM CHLORIDE [Concomitant]
  5. LORAZEPAM [Concomitant]
  6. VITAMIN D [Concomitant]
  7. EXELON [Suspect]
     Indication: COGNITIVE DISORDER
     Dosage: 4.6 MG, TRANSDERMAL
     Route: 062
     Dates: start: 20100401, end: 20110301
  8. CHONDROITIN W/GLUCOSAMINE (CHONDROTIN SULFATE, GLUCOSAMINE) [Concomitant]
  9. LOVASTATIN [Concomitant]
  10. MULTIVITAMIN (ASCORBIC ACID, ERGOCALCIFEROL, FOLIC ACID, NICOTINAMIDE, [Concomitant]
  11. VITAMIN E [Concomitant]
  12. CALCIUM CARBONATE [Concomitant]
  13. PENTASA [Concomitant]
  14. CITALOPRAM HYDROBROMIDE [Concomitant]

REACTIONS (4)
  - CONFUSIONAL STATE [None]
  - ABDOMINAL DISCOMFORT [None]
  - DIARRHOEA [None]
  - NAUSEA [None]
